FAERS Safety Report 7991906-5 (Version None)
Quarter: 2011Q4

REPORT INFORMATION
  Report Type: 
  Country: None (occurrence: None)
  Receive Date: 20111219
  Receipt Date: 20111212
  Transmission Date: 20120403
  Serious: Yes (Other)
  Sender: FDA-Public Use
  Company Number: PHHY2011JP65245

PATIENT
  Age: 34 Year
  Sex: Female

DRUGS (7)
  1. RIFAMPICIN [Suspect]
     Indication: PULMONARY TUBERCULOSIS
     Dosage: 600 MG, UNK
  2. VITAMIN B6 [Concomitant]
     Dosage: UNK
  3. RITODRINE HYDROCHLORIDE [Suspect]
     Dosage: UNK
     Route: 041
  4. PYRAZINAMIDE [Concomitant]
     Dosage: UNK
  5. ETHAMBUTOL HYDROCHLORIDE [Suspect]
     Indication: PULMONARY TUBERCULOSIS
     Dosage: 750 MG, UNK
  6. ISONIAZID [Suspect]
     Indication: PULMONARY TUBERCULOSIS
     Dosage: 300 MG, UNK
  7. BETAMETHASONE [Suspect]
     Dosage: 12 MG, UNK

REACTIONS (5)
  - TUBERCULOSIS [None]
  - MATERNAL EXPOSURE DURING PREGNANCY [None]
  - INTRAUTERINE INFECTION [None]
  - PREMATURE LABOUR [None]
  - AMNIOTIC FLUID VOLUME DECREASED [None]
